FAERS Safety Report 6896331-6 (Version None)
Quarter: 2010Q3

REPORT INFORMATION
  Report Type: 
  Country: None (occurrence: None)
  Receive Date: 20100802
  Receipt Date: 20100729
  Transmission Date: 20110219
  Serious: Yes (Death, Other)
  Sender: FDA-Public Use
  Company Number: CN-GENZYME-CERZ-1001417

PATIENT

DRUGS (2)
  1. CEREZYME [Suspect]
     Indication: GAUCHER'S DISEASE
     Dosage: 30 U/KG, Q4W
     Route: 042
     Dates: start: 20090801, end: 20100725
  2. CEREZYME [Suspect]
     Dosage: 30 U/KG, Q2W
     Route: 042
     Dates: start: 20080815, end: 20090801

REACTIONS (7)
  - COUGH [None]
  - CYANOSIS [None]
  - DISEASE PROGRESSION [None]
  - DYSPNOEA [None]
  - FACE OEDEMA [None]
  - INCREASED UPPER AIRWAY SECRETION [None]
  - RESPIRATORY ARREST [None]
